FAERS Safety Report 5866322-2 (Version None)
Quarter: 2008Q3

REPORT INFORMATION
  Report Type: 
  Country: None (occurrence: None)
  Receive Date: 20080901
  Receipt Date: 20080826
  Transmission Date: 20090109
  Serious: Yes (Other)
  Sender: FDA-Public Use
  Company Number: US-BAYER-200826268NA

PATIENT
  Age: 25 Year
  Sex: Female
  Weight: 73 kg

DRUGS (2)
  1. YAZ [Suspect]
     Indication: CONTRACEPTION
     Dates: start: 20080611, end: 20080615
  2. VICODINE [Concomitant]
     Indication: FIBROMYALGIA

REACTIONS (9)
  - ANGER [None]
  - CRYING [None]
  - DYSMENORRHOEA [None]
  - GASTRIC DISORDER [None]
  - MENORRHAGIA [None]
  - MOOD SWINGS [None]
  - POLYMENORRHOEA [None]
  - THYROID DISORDER [None]
  - VISUAL IMPAIRMENT [None]
